FAERS Safety Report 13393190 (Version 1)
Quarter: 2017Q1

REPORT INFORMATION
  Report Type: Spontaneous
  Country: US (occurrence: US)
  Receive Date: 20170331
  Receipt Date: 20170331
  Transmission Date: 20170429
  Serious: No
  Sender: FDA-Public Use
  Company Number: US-SEPTODONT-201603309

PATIENT

DRUGS (2)
  1. LIGNOSPAN STANDARD [Suspect]
     Active Substance: EPINEPHRINE BITARTRATE\LIDOCAINE HYDROCHLORIDE
     Indication: LOCAL ANAESTHESIA
     Dosage: 5-6 CARPULES USED FOR EXTRACTIONS AND FILLINGS USING INFILTRATION/NERVE BLOCK
     Route: 004
  2. LIGNOSPAN STANDARD [Suspect]
     Active Substance: EPINEPHRINE BITARTRATE\LIDOCAINE HYDROCHLORIDE
     Indication: LOCAL ANAESTHESIA
     Dosage: 5-6 CARPULES USED FOR EXTRACTIONS AND FILLINGS USING INFILTRATION/NERVE BLOCK
     Route: 004

REACTIONS (1)
  - Drug ineffective [Unknown]

NARRATIVE: CASE EVENT DATE: 20160328
